FAERS Safety Report 12586512 (Version 2)
Quarter: 2020Q1

REPORT INFORMATION
  Report Type: Spontaneous
  Country: US (occurrence: US)
  Receive Date: 20160725
  Receipt Date: 20200218
  Transmission Date: 20200409
  Serious: No
  Sender: FDA-Public Use
  Company Number: US-PFIZER INC-2016320338

PATIENT
  Age: 48 Year
  Sex: Female
  Weight: 91 kg

DRUGS (2)
  1. DETROL LA [Suspect]
     Active Substance: TOLTERODINE TARTRATE
     Indication: BLADDER DISORDER
     Dosage: 4 MG, 1X/DAY
     Route: 048
  2. PREMARIN [Suspect]
     Active Substance: ESTROGENS, CONJUGATED
     Indication: OESTROGEN REPLACEMENT THERAPY
     Dosage: 1.25 MG, 1X/DAY
     Route: 048

REACTIONS (4)
  - Feeling abnormal [Unknown]
  - Product dose omission [Unknown]
  - Bladder spasm [Recovering/Resolving]
  - Enuresis [Unknown]

NARRATIVE: CASE EVENT DATE: 2004
